FAERS Safety Report 18553747 (Version 2)
Quarter: 2020Q4

REPORT INFORMATION
  Report Type: Spontaneous
  Country: US (occurrence: US)
  Receive Date: 20201127
  Receipt Date: 20201228
  Transmission Date: 20210114
  Serious: No
  Sender: FDA-Public Use
  Company Number: US-GILEAD-2020-0505217

PATIENT
  Age: 55 Year
  Sex: Male
  Weight: 81.63 kg

DRUGS (26)
  1. EPCLUSA [Suspect]
     Active Substance: SOFOSBUVIR\VELPATASVIR
     Indication: PRODUCT USED FOR UNKNOWN INDICATION
     Dosage: 1 DOSAGE FORM, QD
     Route: 048
     Dates: start: 20201123
  2. IMODIUM [Concomitant]
     Active Substance: LOPERAMIDE HYDROCHLORIDE
  3. KETOCONAZOLE. [Concomitant]
     Active Substance: KETOCONAZOLE
  4. METFORMIN [Concomitant]
     Active Substance: METFORMIN HYDROCHLORIDE
  5. BASAGLAR [Concomitant]
     Active Substance: INSULIN GLARGINE
  6. LOPERAMIDE [Concomitant]
     Active Substance: LOPERAMIDE
  7. BREO ELLIPTA [Concomitant]
     Active Substance: FLUTICASONE FUROATE\VILANTEROL TRIFENATATE
  8. GABAPENTIN. [Concomitant]
     Active Substance: GABAPENTIN
  9. FLONASE [MOMETASONE FUROATE] [Concomitant]
     Active Substance: MOMETASONE FUROATE
  10. FLUTICASONE PROPIONATE. [Concomitant]
     Active Substance: FLUTICASONE PROPIONATE
  11. VENTOLIN HFA [Concomitant]
     Active Substance: ALBUTEROL SULFATE
  12. CYCLOBENZAPRINE. [Concomitant]
     Active Substance: CYCLOBENZAPRINE
  13. HYDROCHLOROTHIAZIDE. [Concomitant]
     Active Substance: HYDROCHLOROTHIAZIDE
  14. ONDANSETRON HCL [Concomitant]
     Active Substance: ONDANSETRON HYDROCHLORIDE
  15. FUROSEMIDE. [Concomitant]
     Active Substance: FUROSEMIDE
  16. CLOTRIMAZOLE. [Concomitant]
     Active Substance: CLOTRIMAZOLE
  17. PRAVASTATIN [PRAVASTATIN SODIUM] [Concomitant]
     Active Substance: PRAVASTATIN
  18. ATORVASTATIN [Concomitant]
     Active Substance: ATORVASTATIN
  19. NOVOLOG [Concomitant]
     Active Substance: INSULIN ASPART
  20. SHINGRIX [Concomitant]
     Active Substance: RECOMBINANT VARICELLA ZOSTER VIRUS (VZV) GLYCOPROTEIN E
  21. METHADONE [Concomitant]
     Active Substance: METHADONE HYDROCHLORIDE
  22. FAMOTIDINE. [Concomitant]
     Active Substance: FAMOTIDINE
  23. INSULIN [Concomitant]
     Active Substance: INSULIN NOS
  24. LISINOPRIL. [Concomitant]
     Active Substance: LISINOPRIL
  25. LORATADINE. [Concomitant]
     Active Substance: LORATADINE
  26. TRUEPLUS GLUCOSE [Concomitant]

REACTIONS (1)
  - Vomiting [Recovered/Resolved]
